FAERS Safety Report 10726527 (Version 1)
Quarter: 2015Q1

REPORT INFORMATION
  Report Type: Spontaneous
  Country: US (occurrence: None)
  Receive Date: 20150120
  Receipt Date: 20150120
  Transmission Date: 20150721
  Serious: Yes (Hospitalization)
  Sender: FDA-Public Use
  Company Number: None

PATIENT
  Sex: Female

DRUGS (2)
  1. TEMODAR [Suspect]
     Active Substance: TEMOZOLOMIDE
     Dosage: 3 CAPS DAILY X 5 DAYS  PO
     Dates: start: 20101001
  2. TEMODAR [Suspect]
     Active Substance: TEMOZOLOMIDE
     Dosage: 1 CAP DAILY DAYS 10-14 PO
     Route: 048
     Dates: start: 20101001

REACTIONS (1)
  - Cerebrovascular accident [None]
